FAERS Safety Report 5232160-7 (Version None)
Quarter: 2007Q1

REPORT INFORMATION
  Report Type: 
  Country: None (occurrence: None)
  Receive Date: 20061205
  Receipt Date: 20060905
  Transmission Date: 20070707
  Serious: No
  Sender: FDA-Public Use
  Company Number: PHEH2006US11394

PATIENT
  Age: 67 Year
  Sex: Male

DRUGS (1)
  1. EXJADE [Suspect]
     Indication: IRON OVERLOAD
     Dosage: 1500 MG,QD,ORAL
     Route: 048
     Dates: start: 20060814

REACTIONS (3)
  - ASTHENIA [None]
  - CONSTIPATION [None]
  - MUSCULOSKELETAL DISCOMFORT [None]
